FAERS Safety Report 9926125 (Version 1)
Quarter: 2014Q1

REPORT INFORMATION
  Report Type: Report from Study
  Country: US (occurrence: US)
  Receive Date: 20140226
  Receipt Date: 20140226
  Transmission Date: 20141002
  Serious: Yes (Hospitalization)
  Sender: FDA-Public Use
  Company Number: US-PFIZER INC-2014047872

PATIENT
  Age: 78 Year
  Sex: Male
  Weight: 72.8 kg

DRUGS (11)
  1. DOXORUBICIN HCL [Suspect]
     Indication: SARCOMA METASTATIC
     Dosage: UNK
     Dates: start: 20130627
  2. DOXORUBICIN HCL [Suspect]
     Dosage: 56 MG/M2 (108 MG), CONTINUOUS INFUSION, CYCLE 6
     Dates: start: 20131016, end: 20131016
  3. DEXAMETHASONE [Concomitant]
     Dosage: UNK
     Dates: start: 20131016
  4. LEVOTHYROXINE [Concomitant]
     Dosage: UNK
     Dates: start: 20131015
  5. EMLA [Concomitant]
     Dosage: UNK
     Dates: start: 20130627
  6. LORAZEPAM [Concomitant]
     Dosage: UNK
     Dates: start: 20130621
  7. MEGACE [Concomitant]
     Dosage: UNK
     Dates: start: 20130904
  8. NYSTATIN [Concomitant]
     Dosage: UNK
     Dates: start: 20130917
  9. ONDANSETRON [Concomitant]
     Dosage: UNK
     Dates: start: 20131016
  10. PERCOCET [Concomitant]
     Dosage: UNK
     Dates: start: 20130621
  11. SIMVASTATIN [Concomitant]
     Dosage: UNK
     Dates: start: 20130621

REACTIONS (1)
  - Urinary tract infection [Recovering/Resolving]
